FAERS Safety Report 6164505-8 (Version None)
Quarter: 2009Q2

REPORT INFORMATION
  Report Type: 
  Country: None (occurrence: None)
  Receive Date: 20090421
  Receipt Date: 20090408
  Transmission Date: 20091009
  Serious: Yes (Life-Threatening)
  Sender: FDA-Public Use
  Company Number: 005923

PATIENT
  Age: 76 Year
  Sex: Female

DRUGS (9)
  1. PLETAL [Suspect]
     Indication: MYOCARDIAL ISCHAEMIA
     Dosage: 100 MG, BID, ORAL
     Route: 048
     Dates: start: 20090306, end: 20090312
  2. URINORM (BENZBROMARONE) TABLET, 25 MG [Suspect]
     Indication: HYPERURICAEMIA
     Dosage: 25 MG, QD, ORAL
     Route: 048
     Dates: start: 20090305
  3. AMARYL [Suspect]
     Indication: DIABETES MELLITUS
     Dosage: 1 MG, BID; ORAL
     Route: 048
     Dates: start: 20090305
  4. LASIX [Suspect]
     Indication: HYPERTENSION
     Dosage: 20 MG, QD; INTRAVENOUS
     Route: 042
     Dates: start: 20090305, end: 20090310
  5. ISOSORBIDE DINITRATE [Suspect]
     Indication: MYOCARDIAL ISCHAEMIA
     Dosage: 40 MG, QD; TOPICAL
     Route: 061
     Dates: start: 20090306
  6. CARVEDILOL [Suspect]
     Indication: MYOCARDIAL ISCHAEMIA
     Dosage: 2.5 MG, QD; ORAL; 5 MG, DAILY DOSE; ORAL
     Route: 048
     Dates: start: 20090309, end: 20090312
  7. CARVEDILOL [Suspect]
     Indication: MYOCARDIAL ISCHAEMIA
     Dosage: 2.5 MG, QD; ORAL; 5 MG, DAILY DOSE; ORAL
     Route: 048
     Dates: start: 20090313
  8. SIGMART (NICORANDIL) TABLE [Concomitant]
  9. COVERSYL (PERINDOPRIL) TABLET [Concomitant]

REACTIONS (5)
  - GAIT DISTURBANCE [None]
  - LOSS OF CONSCIOUSNESS [None]
  - TORSADE DE POINTES [None]
  - VENTRICULAR EXTRASYSTOLES [None]
  - VENTRICULAR FIBRILLATION [None]
